FAERS Safety Report 9374753 (Version 1)
Quarter: 2013Q2

REPORT INFORMATION
  Report Type: Report from Study
  Country: CA (occurrence: CA)
  Receive Date: 20130628
  Receipt Date: 20130628
  Transmission Date: 20140414
  Serious: Yes (Hospitalization)
  Sender: FDA-Public Use
  Company Number: CA-JNJFOC-20130300667

PATIENT
  Sex: Male
  Weight: 166 kg

DRUGS (8)
  1. REMICADE [Suspect]
     Indication: ANKYLOSING SPONDYLITIS
     Route: 042
     Dates: start: 20110804
  2. REMICADE [Suspect]
     Indication: ANKYLOSING SPONDYLITIS
     Dosage: 6/52
     Route: 042
     Dates: start: 2010
  3. NOVOMETHACIN [Concomitant]
     Dosage: 50 (UNITS UNSPECIFIED)
     Route: 065
  4. ADALAT [Concomitant]
     Dosage: DOSE: 30 (UNITS UNSPECIFIED)
     Route: 065
  5. RABEPRAZOLE [Concomitant]
     Dosage: 20
     Route: 065
  6. BISOPROLOL [Concomitant]
     Dosage: DOSE: 5 (UNITS UNSPECIFIED)
     Route: 065
  7. OXYCODONE [Concomitant]
     Dosage: DOSE: 5/325 (UNITS UNSPECIFIED)
     Route: 065
  8. XARELTO [Concomitant]
     Dosage: DOSE : 20 (UNITS UNSPECIFEID)
     Route: 065

REACTIONS (1)
  - Osteoarthritis [Recovered/Resolved]
